FAERS Safety Report 18627806 (Version 1)
Quarter: 2020Q4

REPORT INFORMATION
  Report Type: Spontaneous
  Country: US (occurrence: US)
  Receive Date: 20201217
  Receipt Date: 20201217
  Transmission Date: 20210114
  Serious: Yes (Hospitalization)
  Sender: FDA-Public Use
  Company Number: US-AXELLIA-003572

PATIENT
  Age: 73 Year
  Sex: Female
  Weight: 68 kg

DRUGS (1)
  1. VANCOMYCIN FRESENIUS KABI [Suspect]
     Active Substance: VANCOMYCIN HYDROCHLORIDE
     Indication: CELLULITIS
     Dosage: STRENGTH: 1 GM
     Route: 042
     Dates: start: 20200421, end: 20200421

REACTIONS (1)
  - Drug hypersensitivity [Recovered/Resolved]

NARRATIVE: CASE EVENT DATE: 20200421
